FAERS Safety Report 5021041-X (Version None)
Quarter: 2006Q2

REPORT INFORMATION
  Report Type: 
  Country: None (occurrence: None)
  Receive Date: 20060606
  Receipt Date: 20060606
  Transmission Date: 20061013
  Serious: Yes (Other)
  Sender: FDA-Public Use
  Company Number: None

PATIENT
  Age: 50 Year
  Sex: Male
  Weight: 75.2971 kg

DRUGS (2)
  1. LASIX [Suspect]
     Indication: OEDEMA
     Dosage: ORAL
     Route: 048
  2. BUMETANIDE [Suspect]
     Indication: CELLULITIS
     Dosage: ORAL
     Route: 048

REACTIONS (2)
  - DRUG INEFFECTIVE [None]
  - NAUSEA [None]
